FAERS Safety Report 8002916-6 (Version None)
Quarter: 2011Q4

REPORT INFORMATION
  Report Type: 
  Country: None (occurrence: None)
  Receive Date: 20111222
  Receipt Date: 20110318
  Transmission Date: 20120403
  Serious: No
  Sender: FDA-Public Use
  Company Number: US-GLAXOSMITHKLINE-A0918956A

PATIENT
  Age: 86 Year
  Sex: Male
  Weight: 80.9 kg

DRUGS (8)
  1. WARFARIN SODIUM [Concomitant]
  2. ADVAIR DISKUS 100/50 [Concomitant]
  3. VITAMIN C [Concomitant]
  4. ACETAMINOPHEN [Concomitant]
  5. VITAMIN B-12 [Concomitant]
  6. AVODART [Suspect]
     Indication: BENIGN PROSTATIC HYPERPLASIA
     Dosage: .5MG PER DAY
     Route: 048
     Dates: start: 20050101
  7. FLUORIDE [Concomitant]
  8. COLACE [Concomitant]

REACTIONS (3)
  - DRUG INEFFECTIVE [None]
  - PRODUCT QUALITY ISSUE [None]
  - URINE FLOW DECREASED [None]
